FAERS Safety Report 9354675 (Version 1)
Quarter: 2013Q2

REPORT INFORMATION
  Report Type: Spontaneous
  Country: US (occurrence: US)
  Receive Date: 20130619
  Receipt Date: 20130619
  Transmission Date: 20140414
  Serious: No
  Sender: FDA-Public Use
  Company Number: US-009507513-1306USA004410

PATIENT
  Age: 44 Year
  Sex: Female

DRUGS (6)
  1. INTRONA [Suspect]
     Indication: ERDHEIM-CHESTER DISEASE
     Dosage: 6 MIU/ML, TIW
     Dates: start: 201001
  2. CARAFATE [Concomitant]
  3. DIVALPROEX SODIUM [Concomitant]
  4. DIOVAN [Concomitant]
  5. PAXIL [Concomitant]
  6. PAROXETINE [Concomitant]

REACTIONS (6)
  - Sleep disorder [Not Recovered/Not Resolved]
  - Thrombosis [Unknown]
  - Hot flush [Not Recovered/Not Resolved]
  - Hyperhidrosis [Not Recovered/Not Resolved]
  - Headache [Not Recovered/Not Resolved]
  - Off label use [Unknown]
